FAERS Safety Report 8015704 (Version 4)
Quarter: 2013Q1

REPORT INFORMATION
  Report Type: Spontaneous
  Country: US (occurrence: US)
  Receive Date: 20110629
  Receipt Date: 20130319
  Transmission Date: 20140127
  Serious: Yes (Hospitalization)
  Sender: FDA-Public Use
  Company Number: US-ELI_LILLY_AND_COMPANY-US201106002049

PATIENT
  Age: 76 None
  Sex: Female

DRUGS (19)
  1. FORTEO [Suspect]
     Indication: OSTEOPOROSIS
     Dosage: 20 UG, QD
     Route: 065
     Dates: start: 201105, end: 201106
  2. FORTEO [Suspect]
     Dosage: 20 UG, 3/W
     Route: 065
     Dates: start: 20110729
  3. FORTEO [Suspect]
     Dosage: 20 UG, 3/W
     Route: 065
  4. FORTEO [Suspect]
     Dosage: 20 UG, OTHER 3 TIMES MONTLY
     Route: 065
  5. FORTEO [Suspect]
     Dosage: 20 UG, EACH EVENING
     Route: 065
  6. CALCIUM [Concomitant]
     Dosage: 600 MG, BID
  7. VITAMIN D [Concomitant]
     Dosage: 1.2 MG, WEEKLY (1/W)
  8. SPIRIVA [Concomitant]
     Dosage: 1 DF, QD
  9. ACTOS [Concomitant]
     Dosage: 15 MG, QD
  10. LISINOPRIL [Concomitant]
     Dosage: 20 MG, QD
  11. NORVASC [Concomitant]
     Dosage: 5 MG, QD
  12. PREDNISONE [Concomitant]
     Dosage: 2 MG, QD
  13. PLAQUENIL [Concomitant]
     Dosage: 200 MG, BID
  14. LYRICA [Concomitant]
     Dosage: 50 MG, QD
  15. MOBIC [Concomitant]
     Dosage: 50 MG, QD
  16. METFORMIN [Concomitant]
     Dosage: 5 MG, BID
  17. VENTOLIN                                /SCH/ [Concomitant]
     Dosage: UNK, PRN
  18. POTASSIUM CHLORIDE [Concomitant]
     Dosage: 10 MEQ, PRN
  19. FUROSEMIDE [Concomitant]
     Dosage: 20 MG, PRN

REACTIONS (14)
  - Dyspnoea [Recovering/Resolving]
  - Thyroid cyst [Unknown]
  - Pain in jaw [Unknown]
  - Neck pain [Unknown]
  - Dizziness [Unknown]
  - Nausea [Unknown]
  - Chronic obstructive pulmonary disease [Unknown]
  - Muscular weakness [Not Recovered/Not Resolved]
  - Headache [Recovered/Resolved]
  - Nausea [Unknown]
  - Drug dose omission [Not Recovered/Not Resolved]
  - Drug prescribing error [Not Recovered/Not Resolved]
  - Intentional drug misuse [Unknown]
  - Nausea [Recovered/Resolved]
